FAERS Safety Report 7941447-6 (Version None)
Quarter: 2011Q4

REPORT INFORMATION
  Report Type: 
  Country: None (occurrence: None)
  Receive Date: 20111128
  Receipt Date: 20111114
  Transmission Date: 20120403
  Serious: Yes (Hospitalization)
  Sender: FDA-Public Use
  Company Number: IT-NOVOPROD-339546

PATIENT

DRUGS (4)
  1. LACIDIPINA [Concomitant]
     Dosage: 4 MG, UNK
     Route: 048
     Dates: start: 20060531
  2. VICTOZA [Suspect]
     Indication: TYPE 2 DIABETES MELLITUS
     Dosage: 1.2 MG, UNK
     Route: 058
     Dates: start: 20110826, end: 20111107
  3. IRBESARTAN [Concomitant]
     Dosage: 300 MG, UNK
     Route: 048
     Dates: start: 20060220
  4. ATORVASTATINA [Concomitant]
     Dosage: 20 MG, UNK
     Route: 048
     Dates: start: 20060220

REACTIONS (1)
  - PANCREATITIS [None]
